FAERS Safety Report 11515657 (Version 2)
Quarter: 2015Q4

REPORT INFORMATION
  Report Type: Spontaneous
  Country: DE (occurrence: DE)
  Receive Date: 20150916
  Receipt Date: 20151015
  Transmission Date: 20160304
  Serious: Yes (Hospitalization)
  Sender: FDA-Public Use
  Company Number: PHHY2015DE109824

PATIENT
  Sex: Female

DRUGS (4)
  1. HUMIRA [Concomitant]
     Active Substance: ADALIMUMAB
     Indication: PRODUCT USED FOR UNKNOWN INDICATION
     Route: 065
     Dates: end: 201505
  2. VOLTAREN RESINAT [Suspect]
     Active Substance: DICLOFENAC
     Dosage: 75 MG, (ONCE UP TO TWICE DAILY)
     Route: 065
     Dates: start: 201505
  3. VOLTAREN RESINAT [Suspect]
     Active Substance: DICLOFENAC
     Indication: PAIN
     Dosage: 75 MG, (PRN ONCE UP TO TWICE DAILY)
     Route: 065
     Dates: start: 2007, end: 2015
  4. RAMIPRIL COMP [Concomitant]
     Active Substance: HYDROCHLOROTHIAZIDE\RAMIPRIL
     Indication: PRODUCT USED FOR UNKNOWN INDICATION
     Route: 065

REACTIONS (3)
  - Urinary retention [Unknown]
  - Genital rash [Unknown]
  - Genital swelling [Unknown]

NARRATIVE: CASE EVENT DATE: 2015
